FAERS Safety Report 10146496 (Version 2)
Quarter: 2014Q2

REPORT INFORMATION
  Report Type: Spontaneous
  Country: US (occurrence: US)
  Receive Date: 20140501
  Receipt Date: 20140522
  Transmission Date: 20141212
  Serious: Yes (Other)
  Sender: FDA-Public Use
  Company Number: US-PFIZER INC-2014118861

PATIENT
  Age: 73 Year
  Sex: Female
  Weight: 64 kg

DRUGS (4)
  1. PREMARIN [Suspect]
     Indication: OESTROGEN REPLACEMENT THERAPY
     Dosage: 0.625 MG, 1X/DAY
     Route: 048
     Dates: start: 1989, end: 1996
  2. ALEVE [Concomitant]
     Indication: HEADACHE
     Dosage: UNK, AS NEEDED
  3. ALEVE [Concomitant]
     Indication: MUSCLE SPASMS
  4. PROVERA [Concomitant]
     Indication: OESTROGEN REPLACEMENT THERAPY
     Dosage: 2.5 MG, 1X/DAY
     Dates: start: 1990, end: 1996

REACTIONS (1)
  - Spinal fusion acquired [Unknown]
